FAERS Safety Report 8218491-7 (Version None)
Quarter: 2012Q1

REPORT INFORMATION
  Report Type: 
  Country: None (occurrence: None)
  Receive Date: 20120319
  Receipt Date: 20120312
  Transmission Date: 20120608
  Serious: Yes (Hospitalization)
  Sender: FDA-Public Use
  Company Number: US-PFIZER INC-2012046534

PATIENT
  Age: 56 Year
  Sex: Female
  Weight: 105.9 kg

DRUGS (3)
  1. COUMADIN [Concomitant]
     Dosage: UNK
  2. TYVASO [Suspect]
     Indication: PULMONARY ARTERIAL HYPERTENSION
     Dosage: 216 MCG (54 MCG, 4 X DAY)
     Route: 055
     Dates: start: 20110329
  3. REVATIO [Suspect]
     Indication: PULMONARY ARTERIAL HYPERTENSION
     Dosage: UNK

REACTIONS (1)
  - HYPERGLYCAEMIA [None]
